FAERS Safety Report 9052518 (Version 26)
Quarter: 2015Q4

REPORT INFORMATION
  Report Type: Report from Study
  Country: CA (occurrence: CA)
  Receive Date: 20130207
  Receipt Date: 20151231
  Transmission Date: 20160305
  Serious: Yes (Other)
  Sender: FDA-Public Use
  Company Number: PHHY2013CA008328

PATIENT
  Age: 77 Year
  Sex: Female

DRUGS (10)
  1. TARGIN [Suspect]
     Active Substance: NALOXONE HYDROCHLORIDE\OXYCODONE HYDROCHLORIDE
     Indication: PAIN
     Route: 065
  2. FOSAMAX [Concomitant]
     Active Substance: ALENDRONATE SODIUM
     Indication: PRODUCT USED FOR UNKNOWN INDICATION
     Route: 065
  3. VITAMIN D [Concomitant]
     Active Substance: CHOLECALCIFEROL
     Indication: PRODUCT USED FOR UNKNOWN INDICATION
     Route: 065
  4. ASPIRIN. [Concomitant]
     Active Substance: ASPIRIN
     Indication: PRODUCT USED FOR UNKNOWN INDICATION
     Dosage: UNK OT, QOD
     Route: 065
  5. APO-RAMIPRIL [Suspect]
     Active Substance: RAMIPRIL
     Indication: HYPERTENSION
     Dosage: 2.5 MG, BID
     Route: 065
     Dates: end: 201401
  6. TASIGNA [Suspect]
     Active Substance: NILOTINIB
     Indication: CHRONIC MYELOID LEUKAEMIA
     Dosage: 400 MG, QD
     Route: 048
     Dates: start: 201004
  7. CRESTOR [Concomitant]
     Active Substance: ROSUVASTATIN CALCIUM
     Indication: PRODUCT USED FOR UNKNOWN INDICATION
     Route: 065
  8. CALTRATE [Concomitant]
     Active Substance: CALCIUM CARBONATE
     Indication: PRODUCT USED FOR UNKNOWN INDICATION
     Route: 065
  9. DILTIAZEM [Suspect]
     Active Substance: DILTIAZEM
     Indication: PRODUCT USED FOR UNKNOWN INDICATION
     Dosage: 120 MG, QD
     Route: 065
  10. TYLENOL ARTHRITIS PAIN [Concomitant]
     Active Substance: ACETAMINOPHEN
     Indication: PRODUCT USED FOR UNKNOWN INDICATION
     Route: 065

REACTIONS (36)
  - Peripheral swelling [Not Recovered/Not Resolved]
  - Musculoskeletal pain [Unknown]
  - Renal impairment [Unknown]
  - Renal pain [Recovering/Resolving]
  - Pruritus [Unknown]
  - Abdominal pain upper [Recovered/Resolved]
  - Fatigue [Unknown]
  - Arthritis [Unknown]
  - Dysstasia [Unknown]
  - Gait disturbance [Unknown]
  - Skin disorder [Unknown]
  - Balance disorder [Unknown]
  - Erythema [Unknown]
  - Red blood cell count decreased [Unknown]
  - Blood pressure increased [Unknown]
  - Arthralgia [Unknown]
  - Bone pain [Not Recovered/Not Resolved]
  - Arteritis [Unknown]
  - Ear pain [Unknown]
  - Joint swelling [Unknown]
  - Pain in extremity [Not Recovered/Not Resolved]
  - Burning sensation [Unknown]
  - Back pain [Unknown]
  - Abdominal pain [Recovered/Resolved]
  - Oropharyngeal pain [Unknown]
  - Nasopharyngitis [Unknown]
  - Constipation [Unknown]
  - Temporal arteritis [Recovered/Resolved]
  - Headache [Unknown]
  - Vasodilatation [Recovered/Resolved]
  - Discomfort [Unknown]
  - Foot deformity [Unknown]
  - Diarrhoea [Unknown]
  - Polymyalgia rheumatica [Recovered/Resolved]
  - Foot prosthesis user [Unknown]
  - Urine output decreased [Unknown]

NARRATIVE: CASE EVENT DATE: 201104
